FAERS Safety Report 10034408 (Version 1)
Quarter: 2014Q1

REPORT INFORMATION
  Report Type: Spontaneous
  Country: US (occurrence: None)
  Receive Date: 20140324
  Receipt Date: 20140324
  Transmission Date: 20141002
  Serious: Yes (Hospitalization)
  Sender: FDA-Public Use
  Company Number: None

PATIENT
  Age: 31 Year
  Sex: Female
  Weight: 92.08 kg

DRUGS (4)
  1. DECITABINE [Suspect]
     Indication: MYELODYSPLASTIC SYNDROME
     Dosage: 20MG/M2, QD X 10, 28DAYCYCLE
     Dates: start: 20140224
  2. ACYCLOVIR [Concomitant]
  3. ONDANSETRON HCI [Concomitant]
  4. OXYCODONE HCI [Concomitant]

REACTIONS (3)
  - Febrile neutropenia [None]
  - Oral pain [None]
  - Tongue ulceration [None]
